FAERS Safety Report 20620134 (Version 1)
Quarter: 2022Q1

REPORT INFORMATION
  Report Type: Spontaneous
  Country: US (occurrence: None)
  Receive Date: 20220321
  Receipt Date: 20220321
  Transmission Date: 20220423
  Serious: No
  Sender: FDA-Public Use
  Company Number: None

PATIENT
  Age: 14 Year
  Sex: Male

DRUGS (1)
  1. ABIRATERONE [Suspect]
     Active Substance: ABIRATERONE
     Indication: Prostate cancer
     Dosage: 1000 MG DAILY ORAL?
     Route: 048
     Dates: start: 202104

REACTIONS (7)
  - Muscle spasms [None]
  - Pain [None]
  - Gait disturbance [None]
  - Sensitivity to weather change [None]
  - Prostatic specific antigen increased [None]
  - Immunodeficiency [None]
  - Muscle spasms [None]

NARRATIVE: CASE EVENT DATE: 20220304
